FAERS Safety Report 8178184-1 (Version None)
Quarter: 2012Q1

REPORT INFORMATION
  Report Type: 
  Country: None (occurrence: None)
  Receive Date: 20120301
  Receipt Date: 20120227
  Transmission Date: 20120608
  Serious: Yes (Death)
  Sender: FDA-Public Use
  Company Number: US-B.I. PHARMACEUTICALS,INC./RIDGEFIELD-2012-BP-03703BP

PATIENT
  Sex: Male

DRUGS (1)
  1. PRADAXA [Suspect]

REACTIONS (5)
  - LOSS OF CONSCIOUSNESS [None]
  - DEATH [None]
  - DEPRESSION [None]
  - ASTHENIA [None]
  - DIPLEGIA [None]
